FAERS Safety Report 8761381 (Version 3)
Quarter: 2012Q4

REPORT INFORMATION
  Report Type: 
  Country: JP (occurrence: JP)
  Receive Date: 20120829
  Receipt Date: 20121009
  Transmission Date: 20130627
  Serious: Yes (Hospitalization, Other)
  Sender: FDA-Public Use
  Company Number: JP-PFIZER INC-2012211252

PATIENT
  Age: 82 Year
  Sex: Female

DRUGS (1)
  1. MS CONTIN [Suspect]
     Indication: CANCER PAIN
     Dosage: 20 mg, daily
     Route: 048

REACTIONS (2)
  - Altered state of consciousness [Recovered/Resolved]
  - Respiratory depression [Recovered/Resolved]
